FAERS Safety Report 19845490 (Version 1)
Quarter: 2021Q3

REPORT INFORMATION
  Report Type: Spontaneous
  Country: GB (occurrence: GB)
  Receive Date: 20210916
  Receipt Date: 20210916
  Transmission Date: 20211014
  Serious: Yes (Disabling)
  Sender: FDA-Public Use
  Company Number: None

PATIENT
  Age: 37 Year
  Sex: Female

DRUGS (3)
  1. SYMBICORT [Concomitant]
     Active Substance: BUDESONIDE\FORMOTEROL FUMARATE DIHYDRATE
  2. CYCLOSPORINE. [Concomitant]
     Active Substance: CYCLOSPORINE
  3. ELOCON [Suspect]
     Active Substance: MOMETASONE FUROATE
     Indication: ECZEMA
     Dates: start: 20200101, end: 20200118

REACTIONS (8)
  - Steroid withdrawal syndrome [None]
  - Erythema [None]
  - Bone pain [None]
  - Joint swelling [None]
  - Skin exfoliation [None]
  - Alopecia [None]
  - Dry skin [None]
  - Skin weeping [None]

NARRATIVE: CASE EVENT DATE: 20200108
